FAERS Safety Report 13529236 (Version 1)
Quarter: 2017Q2

REPORT INFORMATION
  Report Type: Spontaneous
  Country: US (occurrence: US)
  Receive Date: 20170509
  Receipt Date: 20170509
  Transmission Date: 20170830
  Serious: Yes (Death, Hospitalization, Other)
  Sender: FDA-Public Use
  Company Number: US-BAUSCH-BL-2017-012699

PATIENT
  Sex: Female

DRUGS (2)
  1. XIFAXAN [Suspect]
     Active Substance: RIFAXIMIN
     Indication: ALCOHOLIC LIVER DISEASE
  2. XIFAXAN [Suspect]
     Active Substance: RIFAXIMIN
     Indication: SWELLING
     Route: 048

REACTIONS (5)
  - Product use in unapproved indication [Unknown]
  - Abdominal cavity drainage [Unknown]
  - Death [Fatal]
  - Hepatic neoplasm [Unknown]
  - Renal failure [Unknown]
